FAERS Safety Report 13749500 (Version 2)
Quarter: 2017Q3

REPORT INFORMATION
  Report Type: Report from Study
  Country: CA (occurrence: CA)
  Receive Date: 20170713
  Receipt Date: 20170720
  Transmission Date: 20171127
  Serious: Yes (Other)
  Sender: FDA-Public Use
  Company Number: PHHY2013CA014733

PATIENT
  Age: 43 Year
  Sex: Female

DRUGS (12)
  1. XOLAIR [Suspect]
     Active Substance: OMALIZUMAB
     Route: 058
     Dates: start: 20150220
  2. XOLAIR [Suspect]
     Active Substance: OMALIZUMAB
     Route: 058
     Dates: start: 20130206
  3. CICLOSPORIN [Suspect]
     Active Substance: CYCLOSPORINE
     Indication: DERMATITIS
     Dosage: 300 MG, QD
     Route: 048
     Dates: start: 20170707
  4. SYMBICORT [Concomitant]
     Active Substance: BUDESONIDE\FORMOTEROL FUMARATE DIHYDRATE
     Indication: ASTHMA
     Route: 065
  5. VENTOLIN [Concomitant]
     Active Substance: ALBUTEROL SULFATE
     Indication: PRODUCT USED FOR UNKNOWN INDICATION
     Route: 065
  6. XOLAIR [Suspect]
     Active Substance: OMALIZUMAB
     Indication: ASTHMA
     Dosage: 375 MG, BIW
     Route: 058
     Dates: start: 20130124
  7. XOLAIR [Suspect]
     Active Substance: OMALIZUMAB
     Route: 058
     Dates: start: 20140527
  8. XOLAIR [Suspect]
     Active Substance: OMALIZUMAB
     Dosage: UNK
     Route: 058
     Dates: start: 20160317
  9. XOLAIR [Suspect]
     Active Substance: OMALIZUMAB
     Dosage: UNK
     Route: 058
     Dates: start: 20170623
  10. SYMBICORT [Concomitant]
     Active Substance: BUDESONIDE\FORMOTEROL FUMARATE DIHYDRATE
     Indication: SEASONAL ALLERGY
  11. SINGULAIR [Concomitant]
     Active Substance: MONTELUKAST SODIUM
     Indication: PRODUCT USED FOR UNKNOWN INDICATION
     Route: 065
  12. PREDNISONE. [Concomitant]
     Active Substance: PREDNISONE
     Indication: PRODUCT USED FOR UNKNOWN INDICATION
     Route: 065

REACTIONS (23)
  - Bronchitis [Unknown]
  - Lymphadenopathy [Recovering/Resolving]
  - Back pain [Recovering/Resolving]
  - Pain [Recovered/Resolved]
  - Pyrexia [Recovering/Resolving]
  - Skin lesion [Unknown]
  - Dyspnoea [Unknown]
  - Injection site reaction [Recovered/Resolved]
  - Kidney infection [Recovering/Resolving]
  - Migraine [Recovering/Resolving]
  - Wheezing [Unknown]
  - Malaise [Recovering/Resolving]
  - Respiratory rate increased [Unknown]
  - Arthropod bite [Recovering/Resolving]
  - Infection [Recovering/Resolving]
  - Neck pain [Recovering/Resolving]
  - Seasonal allergy [Unknown]
  - Asthma [Unknown]
  - Injection site pain [Recovered/Resolved]
  - Sarcoidosis [Not Recovered/Not Resolved]
  - Muscle contractions involuntary [Recovered/Resolved]
  - Nasopharyngitis [Unknown]
  - Vomiting [Recovering/Resolving]

NARRATIVE: CASE EVENT DATE: 20130206
